FAERS Safety Report 4776478-0 (Version None)
Quarter: 2005Q3

REPORT INFORMATION
  Report Type: 
  Country: None (occurrence: None)
  Receive Date: 20050922
  Receipt Date: 20050815
  Transmission Date: 20060218
  Serious: Yes (Hospitalization, Disabling, Other)
  Sender: FDA-Public Use
  Company Number: US-MERCK-0508USA02879

PATIENT
  Age: 58 Year
  Sex: Male
  Weight: 77 kg

DRUGS (6)
  1. VITAMINS (UNSPECIFIED) [Concomitant]
     Route: 065
     Dates: start: 20000901, end: 20030101
  2. THIAMINE [Concomitant]
     Route: 065
     Dates: start: 20000901, end: 20030101
  3. FOLIC ACID [Concomitant]
     Route: 065
     Dates: start: 20000901, end: 20030101
  4. DILTIAZEM HYDROCHLORIDE [Concomitant]
     Route: 065
     Dates: start: 20000901, end: 20030101
  5. RANITIDINE [Concomitant]
     Route: 065
     Dates: start: 20000901, end: 20030101
  6. VIOXX [Suspect]
     Indication: ARTHRITIS
     Route: 048
     Dates: start: 19960101, end: 20030101

REACTIONS (3)
  - CEREBROVASCULAR ACCIDENT [None]
  - COMPLEX PARTIAL SEIZURES [None]
  - GRAND MAL CONVULSION [None]
